FAERS Safety Report 13015869 (Version 2)
Quarter: 2017Q1

REPORT INFORMATION
  Report Type: Spontaneous
  Country: US (occurrence: US)
  Receive Date: 20161212
  Receipt Date: 20170112
  Transmission Date: 20170428
  Serious: Yes (Other)
  Sender: FDA-Public Use
  Company Number: US-JNJCP-30000363222

PATIENT
  Sex: Male
  Weight: 24 kg

DRUGS (2)
  1. AVEENO BABY SOOTHING RELIEF CREAMY WASH [Suspect]
     Active Substance: COSMETICS
     Indication: PRODUCT USED FOR UNKNOWN INDICATION
     Dosage: SINCE YEARS
     Route: 061
  2. AVEENO ULTRA-CALMING DAILY MOISTURIZER SPF15 [Suspect]
     Active Substance: AVOBENZONE\OCTINOXATE\OCTISALATE
     Indication: DRY SKIN PROPHYLAXIS
     Dosage: DIME SIZE ONCE
     Route: 061
     Dates: start: 20161122, end: 20161122

REACTIONS (2)
  - Anaphylactic shock [Recovered/Resolved]
  - Product label issue [Unknown]

NARRATIVE: CASE EVENT DATE: 20161122
